FAERS Safety Report 5586427-3 (Version None)
Quarter: 2008Q1

REPORT INFORMATION
  Report Type: 
  Country: None (occurrence: None)
  Receive Date: 20080108
  Receipt Date: 20080108
  Transmission Date: 20080703
  Serious: Yes (Other)
  Sender: FDA-Public Use
  Company Number: None

PATIENT
  Sex: Female
  Weight: 52.1637 kg

DRUGS (1)
  1. CHANTIX [Suspect]
     Indication: SMOKING CESSATION THERAPY
     Dosage: 1MG TWICE DAILY PO
     Route: 048
     Dates: start: 20071001, end: 20071231

REACTIONS (5)
  - ANXIETY [None]
  - CHEST PAIN [None]
  - MALAISE [None]
  - MIGRAINE [None]
  - NO THERAPEUTIC RESPONSE [None]
